FAERS Safety Report 9807483 (Version 1)
Quarter: 2014Q1

REPORT INFORMATION
  Report Type: Spontaneous
  Country: US (occurrence: US)
  Receive Date: 20140110
  Receipt Date: 20140110
  Transmission Date: 20141002
  Serious: No
  Sender: FDA-Public Use
  Company Number: US-SANOFI-AVENTIS-2013SA083678

PATIENT
  Sex: Female

DRUGS (4)
  1. PLAVIX [Suspect]
     Route: 065
  2. CARDIZEM [Concomitant]
  3. METFORMIN [Concomitant]
  4. WATER PILLS [Concomitant]

REACTIONS (5)
  - Skin discolouration [Not Recovered/Not Resolved]
  - Feeling abnormal [Not Recovered/Not Resolved]
  - Purpura [Not Recovered/Not Resolved]
  - Fatigue [Not Recovered/Not Resolved]
  - Visual impairment [Not Recovered/Not Resolved]
